FAERS Safety Report 10269644 (Version 1)
Quarter: 2014Q2

REPORT INFORMATION
  Report Type: Spontaneous
  Country: GB (occurrence: None)
  Receive Date: 20140625
  Receipt Date: 20140625
  Transmission Date: 20141212
  Serious: Yes (Other)
  Sender: FDA-Public Use
  Company Number: SYM-2014-22109

PATIENT
  Age: 32 Year
  Sex: Female

DRUGS (2)
  1. METRONIDAZOLE (METRONIDAZOLE) [Suspect]
     Indication: PERICORONITIS
     Route: 048
     Dates: start: 20140522, end: 20140527
  2. FEXOFENADINE HYDROCHLORIDE (FEXOFENADINE HYDROCHLORIDE) [Concomitant]

REACTIONS (7)
  - Fatigue [None]
  - Headache [None]
  - Dizziness [None]
  - Confusional state [None]
  - Nausea [None]
  - Diarrhoea [None]
  - Vomiting [None]
